FAERS Safety Report 13419936 (Version 1)
Quarter: 2017Q2

REPORT INFORMATION
  Report Type: Spontaneous
  Country: US (occurrence: US)
  Receive Date: 20170407
  Receipt Date: 20170407
  Transmission Date: 20170830
  Serious: No
  Sender: FDA-Public Use
  Company Number: US-JNJFOC-20170110326

PATIENT
  Age: 60 Year
  Sex: Female

DRUGS (2)
  1. TURMERIC [Concomitant]
     Active Substance: HERBALS\TURMERIC
     Indication: ARTHRALGIA
     Route: 048
  2. STELARA [Suspect]
     Active Substance: USTEKINUMAB
     Indication: PRODUCT USED FOR UNKNOWN INDICATION
     Route: 058
     Dates: start: 20160722

REACTIONS (1)
  - Ageusia [Recovering/Resolving]

NARRATIVE: CASE EVENT DATE: 20161118
